FAERS Safety Report 17274362 (Version 1)
Quarter: 2020Q1

REPORT INFORMATION
  Report Type: Spontaneous
  Country: SE (occurrence: SE)
  Receive Date: 20200115
  Receipt Date: 20200115
  Transmission Date: 20200409
  Serious: Yes (Other)
  Sender: FDA-Public Use
  Company Number: SE-NAPPMUNDI-GBR-2020-0074312

PATIENT
  Age: 68 Year
  Sex: Male

DRUGS (2)
  1. OXYCONTIN [Suspect]
     Active Substance: OXYCODONE HYDROCHLORIDE
     Indication: PRODUCT USED FOR UNKNOWN INDICATION
     Dosage: UNK
     Route: 065
     Dates: start: 2019, end: 2019
  2. DOLCONTIN [Suspect]
     Active Substance: MORPHINE
     Indication: PAIN
     Dosage: 400 MG, DAILY (DEPOTTABLETT)
     Route: 048
     Dates: start: 2017, end: 2019

REACTIONS (4)
  - Hot flush [Recovered/Resolved]
  - Psychotic disorder [Recovered/Resolved]
  - Suicidal ideation [Recovered/Resolved]
  - Breakthrough pain [Recovered/Resolved]

NARRATIVE: CASE EVENT DATE: 2019
